FAERS Safety Report 7120261-8 (Version None)
Quarter: 2010Q4

REPORT INFORMATION
  Report Type: 
  Country: None (occurrence: None)
  Receive Date: 20101123
  Receipt Date: 20101109
  Transmission Date: 20110411
  Serious: Yes (Other)
  Sender: FDA-Public Use
  Company Number: DZ-GENENTECH-307271

PATIENT
  Age: 41 Year
  Sex: Female

DRUGS (4)
  1. MABTHERA [Suspect]
     Indication: RHEUMATOID ARTHRITIS
     Dosage: UNK
     Route: 042
     Dates: start: 20100801, end: 20100801
  2. METHOTREXATE [Suspect]
     Indication: RHEUMATOID ARTHRITIS
     Dosage: 7 DF, 1/WEEK
     Route: 048
     Dates: start: 20060101
  3. METHOTREXATE [Suspect]
     Dosage: 4 DF, 1/WEEK
     Route: 048
     Dates: end: 20100401
  4. MEDROL [Concomitant]
     Indication: PRODUCT USED FOR UNKNOWN INDICATION
     Dosage: UNK
     Route: 065

REACTIONS (2)
  - ANAEMIA [None]
  - THROMBOCYTOSIS [None]
